FAERS Safety Report 17262596 (Version 2)
Quarter: 2020Q2

REPORT INFORMATION
  Report Type: Report from Study
  Country: US (occurrence: US)
  Receive Date: 20200113
  Receipt Date: 20200504
  Transmission Date: 20200713
  Serious: Yes (Death, Other)
  Sender: FDA-Public Use
  Company Number: US-MYLANLABS-2020M1003642

PATIENT
  Age: 71 Year
  Sex: Female
  Weight: 66 kg

DRUGS (1)
  1. GLATIRAMER ACETATE INJECTION [Suspect]
     Active Substance: GLATIRAMER ACETATE
     Indication: RELAPSING-REMITTING MULTIPLE SCLEROSIS
     Dosage: 40 MG/ML, SQ 3X/ WEEKLY
     Route: 058

REACTIONS (5)
  - Oedema peripheral [Unknown]
  - Coronary artery occlusion [Unknown]
  - Myocardial infarction [Fatal]
  - Respiratory arrest [Fatal]
  - Renal failure [Unknown]

NARRATIVE: CASE EVENT DATE: 20191209
